FAERS Safety Report 24766411 (Version 1)
Quarter: 2024Q4

REPORT INFORMATION
  Report Type: Spontaneous
  Country: US (occurrence: US)
  Receive Date: 20241223
  Receipt Date: 20241223
  Transmission Date: 20250115
  Serious: Yes (Other)
  Sender: ELI LILLY AND COMPANY
  Company Number: US-ELI_LILLY_AND_COMPANY-US202412013689

PATIENT
  Sex: Male

DRUGS (3)
  1. FORTEO [Suspect]
     Active Substance: TERIPARATIDE
     Indication: Osteoporosis
     Dosage: 20 UG, DAILY
     Route: 058
     Dates: start: 2022
  2. FORTEO [Suspect]
     Active Substance: TERIPARATIDE
     Indication: Osteoporosis
     Dosage: 20 UG, DAILY
     Route: 058
     Dates: start: 2022
  3. TERIPARATIDE [Suspect]
     Active Substance: TERIPARATIDE
     Indication: Osteoporosis
     Dosage: UNK, UNKNOWN
     Route: 065

REACTIONS (6)
  - Osteoma [Unknown]
  - Bone density decreased [Unknown]
  - Nasal congestion [Unknown]
  - Upper-airway cough syndrome [Unknown]
  - Feeling abnormal [Unknown]
  - Extra dose administered [Unknown]
